FAERS Safety Report 5127401-0 (Version None)
Quarter: 2006Q4

REPORT INFORMATION
  Report Type: 
  Country: None (occurrence: None)
  Receive Date: 20061013
  Receipt Date: 20061013
  Transmission Date: 20070319
  Serious: No
  Sender: FDA-Public Use
  Company Number: None

PATIENT
  Age: 49 Year
  Sex: Male

DRUGS (2)
  1. BACTRIM [Suspect]
     Indication: PNEUMOCYSTIS JIROVECI PNEUMONIA
     Dosage: ORAL; 80.0 MILLIGRAM
     Route: 048
  2. ANTIRETROVIRAL MEDICATIONS [Concomitant]

REACTIONS (5)
  - DIZZINESS [None]
  - GASTROINTESTINAL DISORDER [None]
  - OCULAR HYPERAEMIA [None]
  - PYREXIA [None]
  - SYNCOPE [None]
